FAERS Safety Report 5206804-X (Version None)
Quarter: 2007Q1

REPORT INFORMATION
  Report Type: 
  Country: None (occurrence: None)
  Receive Date: 20070109
  Receipt Date: 20061225
  Transmission Date: 20070707
  Serious: Yes (Life-Threatening, Other)
  Sender: FDA-Public Use
  Company Number: SPVI-2006-01587

PATIENT
  Age: 17 Year
  Sex: Male

DRUGS (10)
  1. PENTASA [Suspect]
     Indication: COLITIS ULCERATIVE
     Dosage: 2250 MG DAILY, ORAL; 1500 MG DAILY, ORAL; 2250 MG DAILY, ORAL
     Route: 048
     Dates: start: 20060613, end: 20060628
  2. PENTASA [Suspect]
     Indication: COLITIS ULCERATIVE
     Dosage: 2250 MG DAILY, ORAL; 1500 MG DAILY, ORAL; 2250 MG DAILY, ORAL
     Route: 048
     Dates: start: 20060704, end: 20060711
  3. PENTASA [Suspect]
     Indication: COLITIS ULCERATIVE
     Dosage: 2250 MG DAILY, ORAL; 1500 MG DAILY, ORAL; 2250 MG DAILY, ORAL
     Route: 048
     Dates: start: 20060712, end: 20060717
  4. MESALAMINE [Suspect]
     Indication: COLITIS ULCERATIVE
     Dosage: 1000 MG DAILY, RECTAL
     Route: 054
     Dates: start: 20060714, end: 20060714
  5. CEFDINIR [Concomitant]
  6. CEFAZOLIN [Concomitant]
  7. FAMOTIDINE [Concomitant]
  8. PREDNISONE ACETATE [Concomitant]
  9. AMPICILLIN SODIUM W/SULBACTRAM SODIUM (AMPICILLIN SODIUM, SULBACTAM SO [Concomitant]
  10. PREDNISOLONE [Concomitant]

REACTIONS (11)
  - ALANINE AMINOTRANSFERASE INCREASED [None]
  - ASPARTATE AMINOTRANSFERASE INCREASED [None]
  - BLOOD LACTATE DEHYDROGENASE INCREASED [None]
  - COLITIS ULCERATIVE [None]
  - CONDITION AGGRAVATED [None]
  - DISSEMINATED INTRAVASCULAR COAGULATION [None]
  - HAEMATURIA [None]
  - HAEMORRHAGE SUBCUTANEOUS [None]
  - SCAR [None]
  - SKIN GRAFT [None]
  - SKIN NECROSIS [None]
